FAERS Safety Report 13748718 (Version 1)
Quarter: 2017Q3

REPORT INFORMATION
  Report Type: Spontaneous
  Country: US (occurrence: US)
  Receive Date: 20170713
  Receipt Date: 20170713
  Transmission Date: 20171127
  Serious: No
  Sender: FDA-Public Use
  Company Number: US-ASTRAZENECA-2017SE70164

PATIENT

DRUGS (2)
  1. NEXIUM [Suspect]
     Active Substance: ESOMEPRAZOLE MAGNESIUM
     Dosage: 2 IN THE LAST 12 HOURS
     Route: 048
  2. RENNIE [Concomitant]
     Active Substance: MAGNESIUM CARBONATE

REACTIONS (2)
  - Gastrooesophageal reflux disease [Unknown]
  - Intentional product misuse [Unknown]
